FAERS Safety Report 9865389 (Version 1)
Quarter: 2014Q1

REPORT INFORMATION
  Report Type: Spontaneous
  Country: US (occurrence: US)
  Receive Date: 20140203
  Receipt Date: 20140203
  Transmission Date: 20141002
  Serious: No
  Sender: FDA-Public Use
  Company Number: US-ALLERGAN-1307733US

PATIENT
  Age: 55 Year
  Sex: Female

DRUGS (4)
  1. RESTASIS [Suspect]
     Indication: DRY EYE
     Dosage: 2 GTT, BID
     Route: 047
     Dates: start: 20130405
  2. LEVOTHYROXINE [Concomitant]
     Indication: HYPOTHYROIDISM
     Dosage: 44 ?G, QD
     Route: 048
  3. OMEPRAZOLE [Concomitant]
     Indication: GASTROOESOPHAGEAL REFLUX DISEASE
     Dosage: 80 MG, QD
     Route: 048
  4. SYSTANE [Concomitant]
     Indication: DRY EYE
     Dosage: 2 GTT, Q2HR
     Route: 047

REACTIONS (5)
  - Blepharitis [Not Recovered/Not Resolved]
  - Excessive eye blinking [Not Recovered/Not Resolved]
  - Iris disorder [Not Recovered/Not Resolved]
  - Eye discharge [Not Recovered/Not Resolved]
  - Photophobia [Not Recovered/Not Resolved]
